FAERS Safety Report 6738359-2 (Version None)
Quarter: 2010Q2

REPORT INFORMATION
  Report Type: 
  Country: None (occurrence: None)
  Receive Date: 20100520
  Receipt Date: 20100511
  Transmission Date: 20101027
  Serious: Yes (Death, Hospitalization)
  Sender: FDA-Public Use
  Company Number: DSA_43151_2010

PATIENT
  Age: 51 Year
  Sex: Female

DRUGS (2)
  1. WELLBUTRIN XL [Suspect]
     Indication: MOOD DISORDER DUE TO A GENERAL MEDICAL CONDITION
     Dosage: 150 MG QD
     Dates: start: 20100201
  2. DIAZEPAM [Suspect]
     Indication: DRUG USE FOR UNKNOWN INDICATION
     Dosage: DF

REACTIONS (4)
  - COMPLETED SUICIDE [None]
  - CONFUSIONAL STATE [None]
  - INTENTIONAL OVERDOSE [None]
  - SEDATION [None]
